FAERS Safety Report 4305667-4 (Version None)
Quarter: 2004Q1

REPORT INFORMATION
  Report Type: 
  Country: None (occurrence: None)
  Receive Date: 20040226
  Receipt Date: 20040107
  Transmission Date: 20041129
  Serious: Yes (Hospitalization)
  Sender: FDA-Public Use
  Company Number: US-BRISTOL-MYERS SQUIBB COMPANY-12472270

PATIENT

DRUGS (2)
  1. ABILIFY [Suspect]
     Dosage: INITIAL DOSE WAS 15 MG/DAY.
     Route: 048
  2. RISPERDAL [Concomitant]

REACTIONS (3)
  - CONVULSION [None]
  - NEUROLEPTIC MALIGNANT SYNDROME [None]
  - PULMONARY EMBOLISM [None]
